FAERS Safety Report 22264798 (Version 1)
Quarter: 2023Q2

REPORT INFORMATION
  Report Type: Spontaneous
  Country: US (occurrence: US)
  Receive Date: 20230428
  Receipt Date: 20230428
  Transmission Date: 20230722
  Serious: No
  Sender: FDA-Public Use
  Company Number: US-MYOVANT SCIENCES GMBH-2023MYSCI0100750

PATIENT
  Age: 76 Year
  Sex: Male

DRUGS (8)
  1. ORGOVYX [Suspect]
     Active Substance: RELUGOLIX
     Indication: Prostate cancer
     Dosage: 360 MILLIGRAM, ONE TIME DOSE
     Route: 065
     Dates: start: 2021, end: 2021
  2. ORGOVYX [Suspect]
     Active Substance: RELUGOLIX
     Dosage: 120 MILLIGRAM, QD
     Route: 065
     Dates: start: 2021
  3. METOPROLOL [Concomitant]
     Active Substance: METOPROLOL
     Indication: Acute respiratory failure
     Dosage: UNK
     Route: 065
  4. FASENRA [Concomitant]
     Active Substance: BENRALIZUMAB
     Indication: Immune system disorder
     Dosage: 30 MILLIGRAM, Q2MO
     Route: 065
     Dates: start: 2021
  5. NEBIVOLOL [Concomitant]
     Active Substance: NEBIVOLOL
     Indication: Blood pressure abnormal
     Dosage: 5 MILLIGRAM, QD
     Route: 065
     Dates: start: 2013
  6. AMLODIPINE BESYLATE\BENAZEPRIL HYDROCHLORIDE [Concomitant]
     Active Substance: AMLODIPINE BESYLATE\BENAZEPRIL HYDROCHLORIDE
     Indication: Blood pressure abnormal
     Dosage: 1 DOSAGE FORM, QD
     Route: 065
     Dates: start: 2013
  7. OXYBUTYNIN [Concomitant]
     Active Substance: OXYBUTYNIN
     Indication: Incontinence
     Dosage: 10 MILLIGRAM, QD
     Route: 065
     Dates: start: 2018
  8. DOXYCYCLINE [Concomitant]
     Active Substance: DOXYCYCLINE
     Indication: Prophylaxis
     Dosage: 100 MILLIGRAM, QD
     Route: 065
     Dates: start: 2021

REACTIONS (3)
  - Blood cholesterol increased [Not Recovered/Not Resolved]
  - Weight increased [Unknown]
  - Therapy interrupted [Unknown]

NARRATIVE: CASE EVENT DATE: 20220701
